FAERS Safety Report 8576279 (Version 3)
Quarter: 2013Q3

REPORT INFORMATION
  Report Type: Spontaneous
  Country: MX (occurrence: MX)
  Receive Date: 20120523
  Receipt Date: 20130903
  Transmission Date: 20140515
  Serious: Yes (Hospitalization)
  Sender: FDA-Public Use
  Company Number: MX-GENZYME-FABR-1002529

PATIENT
  Age: 53 Year
  Sex: Female
  Weight: 126 kg

DRUGS (10)
  1. FABRAZYME [Suspect]
     Indication: FABRY^S DISEASE
     Dosage: 1 MG/KG, Q2W
     Route: 042
     Dates: start: 201001
  2. FABRAZYME [Suspect]
     Dosage: 1 MG/KG, Q2W
     Route: 042
     Dates: start: 200804, end: 200812
  3. FABRAZYME [Suspect]
     Dosage: 1 MG/KG, Q2W
     Route: 042
     Dates: start: 20090115, end: 201002
  4. FABRAZYME [Suspect]
     Dosage: 0.5 MG/KG, Q2W
     Route: 042
     Dates: start: 201002, end: 201101
  5. LEVOFLOXACIN [Suspect]
     Indication: PRODUCT USED FOR UNKNOWN INDICATION
     Dosage: UNK
     Route: 065
     Dates: start: 20101220, end: 20101228
  6. UNSPECIFIED [Suspect]
     Indication: PRODUCT USED FOR UNKNOWN INDICATION
     Dosage: UNK
     Route: 065
     Dates: start: 20101220, end: 20101228
  7. CHLOROPYRAMINE [Concomitant]
     Indication: PREMEDICATION
     Dosage: UNK
     Route: 065
  8. TEMPRA [Concomitant]
     Indication: PREMEDICATION
     Dosage: UNK
     Route: 065
  9. ATENOLOL [Concomitant]
     Indication: PRODUCT USED FOR UNKNOWN INDICATION
     Dosage: 50 MG, UNK
     Route: 065
  10. CODIOVAN [Concomitant]
     Indication: PRODUCT USED FOR UNKNOWN INDICATION
     Dosage: 80 MG, UNK
     Route: 065

REACTIONS (3)
  - Ischaemic cardiomyopathy [Recovered/Resolved]
  - Angina unstable [Recovered/Resolved]
  - Bronchospasm [Recovered/Resolved]
